FAERS Safety Report 9445126 (Version 1)
Quarter: 2013Q3

REPORT INFORMATION
  Report Type: Spontaneous
  Country: CA (occurrence: CA)
  Receive Date: 20130802
  Receipt Date: 20130802
  Transmission Date: 20140515
  Serious: Yes (Hospitalization, Other)
  Sender: FDA-Public Use
  Company Number: 1814612

PATIENT
  Age: 69 Year
  Sex: Female
  Weight: 57.7 kg

DRUGS (3)
  1. CARBOPLATIN [Suspect]
     Indication: HER-2 POSITIVE BREAST CANCER
     Route: 042
     Dates: start: 20100309, end: 20100511
  2. DOCETAXEL [Suspect]
     Indication: HER-2 POSITIVE BREAST CANCER
     Route: 042
     Dates: start: 20100309, end: 20100511
  3. (BEVACIZUMAB) [Concomitant]

REACTIONS (6)
  - Clostridium difficile infection [None]
  - Vomiting [None]
  - Diarrhoea [None]
  - Blood urea increased [None]
  - Blood creatinine increased [None]
  - Hypomagnesaemia [None]
